FAERS Safety Report 15180389 (Version 1)
Quarter: 2018Q3

REPORT INFORMATION
  Report Type: Report from Study
  Country: US (occurrence: BR)
  Receive Date: 20180723
  Receipt Date: 20180723
  Transmission Date: 20181010
  Serious: Yes (Hospitalization, Other)
  Sender: FDA-Public Use
  Company Number: US-SUNOVION-2018SUN002884

PATIENT
  Sex: Female
  Weight: 78 kg

DRUGS (2)
  1. INDACATEROL AND GLYCOPYRROLATE [Suspect]
     Active Substance: GLYCOPYRROLATE\INDACATEROL MALEATE
     Indication: EMPHYSEMA
     Dosage: 1 DF ( GLYCOPYRRONIUM BROMIDE 50 UG, INDACATEROL 110 UG), QD
     Route: 055
  2. INDACATEROL AND GLYCOPYRROLATE [Suspect]
     Active Substance: GLYCOPYRROLATE\INDACATEROL MALEATE
     Indication: DYSPNOEA
     Dosage: 1 DF(GLYCOPYRRONIUM BROMIDE 50 UG, INDACATEROL 110 UG), QD
     Route: 055

REACTIONS (9)
  - Nervousness [Unknown]
  - Pneumonia [Recovered/Resolved]
  - Body height decreased [Unknown]
  - Fatigue [Recovered/Resolved]
  - Influenza [Unknown]
  - Lung disorder [Recovered/Resolved]
  - Aphonia [Recovered/Resolved]
  - Anxiety [Unknown]
  - Weight decreased [Unknown]
